FAERS Safety Report 9709851 (Version 1)
Quarter: 2013Q4

REPORT INFORMATION
  Report Type: Spontaneous
  Country: US (occurrence: US)
  Receive Date: 20131126
  Receipt Date: 20131126
  Transmission Date: 20140711
  Serious: No
  Sender: FDA-Public Use
  Company Number: US-PFIZER INC-2013334881

PATIENT
  Age: 65 Year
  Sex: Female
  Weight: 47.62 kg

DRUGS (1)
  1. SUTENT [Suspect]
     Dosage: 37.5 MG, DAILY
     Dates: start: 20131111

REACTIONS (3)
  - Neck pain [Unknown]
  - Headache [Unknown]
  - Weight decreased [Unknown]
